FAERS Safety Report 10120235 (Version 1)
Quarter: 2014Q2

REPORT INFORMATION
  Report Type: Spontaneous
  Country: CL (occurrence: CL)
  Receive Date: 20140425
  Receipt Date: 20140425
  Transmission Date: 20141212
  Serious: Yes (Other)
  Sender: FDA-Public Use
  Company Number: CL-PFIZER INC-2014115038

PATIENT
  Sex: Female

DRUGS (1)
  1. SOLU-MEDROL [Suspect]
     Indication: VASCULITIS
     Dosage: 500MG, 500MG AND 1000MG
     Route: 040

REACTIONS (2)
  - Pulmonary haemorrhage [Unknown]
  - Drug ineffective [Not Recovered/Not Resolved]
